FAERS Safety Report 11345477 (Version 1)
Quarter: 2015Q3

REPORT INFORMATION
  Report Type: Spontaneous
  Country: US (occurrence: US)
  Receive Date: 20150806
  Receipt Date: 20150806
  Transmission Date: 20151125
  Serious: Yes (Other)
  Sender: FDA-Public Use
  Company Number: US-PFIZER INC-2015182565

PATIENT
  Age: 54 Year
  Sex: Female
  Weight: 119 kg

DRUGS (38)
  1. ENBREL [Suspect]
     Active Substance: ETANERCEPT
     Indication: PSORIATIC ARTHROPATHY
     Dosage: 50 MG, QWK
     Dates: start: 2005
  2. SINEMET [Concomitant]
     Active Substance: CARBIDOPA\LEVODOPA
     Dosage: 01 TABLET, TID
     Route: 048
  3. NOVOLIN R [Concomitant]
     Active Substance: INSULIN HUMAN
     Dosage: 100 UNIT, TID, BEFORE MEALS
  4. METOPROLOL [Concomitant]
     Active Substance: METOPROLOL
     Dosage: 100 MG, DAILY
     Route: 048
  5. PRINIVIL [Concomitant]
     Active Substance: LISINOPRIL
     Dosage: 20 MG, DAILY.
     Route: 048
  6. GUAIFENESIN/CODEINE [Suspect]
     Active Substance: CODEINE PHOSPHATE\GUAIFENESIN
     Dosage: UNK
     Route: 065
  7. ZOFRAN [Concomitant]
     Active Substance: ONDANSETRON HYDROCHLORIDE
     Dosage: 24 MG, UNDER THE TONGUE EVERY 6 HOURS AS NEEDED.
     Route: 060
  8. VITAMIN D3 [Concomitant]
     Active Substance: CHOLECALCIFEROL
     Dosage: 5000 UNK, DAILY.
     Route: 048
  9. NEXIUM [Concomitant]
     Active Substance: ESOMEPRAZOLE MAGNESIUM
     Dosage: 40 MG, QD, EVERY MORNING BEFORE BREAKFAST
     Route: 048
  10. K-DUR [Concomitant]
     Active Substance: POTASSIUM CHLORIDE
     Dosage: 10 MEQ, DAILY
     Route: 048
  11. ASPIRIN. [Concomitant]
     Active Substance: ASPIRIN
     Dosage: 325 MG, DAILY.
     Route: 048
  12. ENBREL [Suspect]
     Active Substance: ETANERCEPT
     Indication: RHEUMATOID ARTHRITIS
  13. LEVAQUIN [Suspect]
     Active Substance: LEVOFLOXACIN
     Dosage: UNK
  14. ERYZOLE [Suspect]
     Active Substance: ERYTHROMYCIN ETHYLSUCCINATE\SULFISOXAZOLE ACETYL
     Dosage: UNK
  15. CRESTOR [Concomitant]
     Active Substance: ROSUVASTATIN CALCIUM
     Dosage: 10 MG, DAILY
     Route: 048
  16. HUMULIN R [Concomitant]
     Active Substance: INSULIN HUMAN
     Dosage: 100 UNIT, TID, BEFORE MEALS
  17. CIPROFLOXACIN. [Suspect]
     Active Substance: CIPROFLOXACIN
     Dosage: UNK
  18. DOMPERIDONE [Concomitant]
     Active Substance: DOMPERIDONE
     Dosage: 10 MG, DAILY
     Route: 048
  19. XANAX [Concomitant]
     Active Substance: ALPRAZOLAM
     Dosage: 1 MG, ONE TO TWO TABLETS ONE HOUR BEFORE MRI
     Route: 048
  20. RANEXA [Concomitant]
     Active Substance: RANOLAZINE
     Dosage: 500 MG, BID
     Route: 048
  21. OXYCONTIN [Concomitant]
     Active Substance: OXYCODONE HYDROCHLORIDE
     Dosage: 15 MG, UNK
     Route: 048
  22. PLAVIX [Concomitant]
     Active Substance: CLOPIDOGREL BISULFATE
     Dosage: 75 MG, DAILY
     Route: 048
  23. ZESTRIL [Concomitant]
     Active Substance: LISINOPRIL
     Dosage: 20 MG, DAILY
  24. ZITHROMAX [Suspect]
     Active Substance: AZITHROMYCIN DIHYDRATE
     Dosage: UNK
  25. LEVEMIR [Suspect]
     Active Substance: INSULIN DETEMIR
     Dosage: UNK
  26. CEFTIZOXIME [Suspect]
     Active Substance: CEFTIZOXIME
     Dosage: UNK
  27. TETANUS TOXOID [Suspect]
     Active Substance: CLOSTRIDIUM TETANI TOXOID ANTIGEN (FORMALDEHYDE INACTIVATED)
     Dosage: UNK
  28. DIPHTHERIA TOXOID NOS [Suspect]
     Active Substance: CORYNEBACTERIUM DIPHTHERIAE TOXOID ANTIGEN (FORMALDEHYDE INACTIVATED)
     Dosage: UNK
  29. METHOTREXATE [Concomitant]
     Active Substance: METHOTREXATE
     Dosage: 2.5 MG, 3 TABLETS ONCE A WEEK
     Route: 048
  30. NEURONTIN [Concomitant]
     Active Substance: GABAPENTIN
     Dosage: 100 MG, TID
     Route: 048
  31. NITROSTAT [Concomitant]
     Active Substance: NITROGLYCERIN
     Dosage: 0.4 MG, AS NECESSARY, EVERY 5 MINUTES AS NEEDED
     Route: 060
  32. LANTUS [Concomitant]
     Active Substance: INSULIN GLARGINE
     Dosage: 70 UNIT, NIGHTLY
  33. IMDUR [Concomitant]
     Active Substance: ISOSORBIDE MONONITRATE
     Dosage: 60 MG, DAILY.
     Route: 048
  34. FOLVITE [Concomitant]
     Active Substance: FOLIC ACID
     Dosage: 1 TABLET DAILY
     Route: 048
  35. TOPAMAX [Concomitant]
     Active Substance: TOPIRAMATE
     Dosage: 100 MG, TAKE 100 MG BY MOUTH DAILY
     Route: 048
  36. PHENERGAN [Concomitant]
     Active Substance: PROMETHAZINE HYDROCHLORIDE
     Dosage: 25 MG, UNK
     Route: 048
  37. AUGMENTIN [Suspect]
     Active Substance: AMOXICILLIN\CLAVULANATE POTASSIUM
     Dosage: UNK
  38. DEPO-MEDROL [Concomitant]
     Active Substance: METHYLPREDNISOLONE ACETATE
     Dosage: 40 MG, UNK
     Route: 031

REACTIONS (8)
  - Nausea [Unknown]
  - Urticaria [Unknown]
  - Parkinson^s disease [Unknown]
  - Vomiting [Unknown]
  - Rash [Unknown]
  - Diarrhoea [Unknown]
  - Drug hypersensitivity [Unknown]
  - Cataract [Unknown]

NARRATIVE: CASE EVENT DATE: 20121116
